FAERS Safety Report 19928422 (Version 1)
Quarter: 2021Q4

REPORT INFORMATION
  Report Type: Spontaneous
  Country: US (occurrence: US)
  Receive Date: 20211006
  Receipt Date: 20211006
  Transmission Date: 20220303
  Serious: Yes (Hospitalization, Disabling)
  Sender: FDA-Public Use
  Company Number: None

PATIENT
  Age: 34 Year
  Sex: Female
  Weight: 53.1 kg

DRUGS (2)
  1. KLONOPIN [Suspect]
     Active Substance: CLONAZEPAM
     Indication: Anxiety
     Route: 048
  2. KLONOPIN [Suspect]
     Active Substance: CLONAZEPAM
     Indication: Sleep disorder

REACTIONS (11)
  - Withdrawal syndrome [None]
  - Blood pressure increased [None]
  - Tremor [None]
  - Visual impairment [None]
  - Affect lability [None]
  - Weight decreased [None]
  - Insomnia [None]
  - Depression [None]
  - Nausea [None]
  - Pain in extremity [None]
  - Mental impairment [None]

NARRATIVE: CASE EVENT DATE: 20191216
